FAERS Safety Report 8990521 (Version 2)
Quarter: 2013Q1

REPORT INFORMATION
  Report Type: Spontaneous
  Country: JP (occurrence: JP)
  Receive Date: 20121228
  Receipt Date: 20130203
  Transmission Date: 20140127
  Serious: Yes (Other)
  Sender: FDA-Public Use
  Company Number: JP-UCBSA-073994

PATIENT
  Age: 66 Year
  Sex: Female

DRUGS (6)
  1. XYZAL [Suspect]
     Indication: DRUG ERUPTION
     Route: 048
     Dates: start: 20121126, end: 20121128
  2. PARIET [Concomitant]
     Indication: GASTROOESOPHAGEAL REFLUX DISEASE
     Route: 048
  3. PRAVASTATIN NA [Concomitant]
     Indication: HYPERLIPIDAEMIA
     Route: 048
  4. DIOVAN [Concomitant]
     Indication: HYPERTENSION
     Route: 048
  5. PREDONINE [Concomitant]
     Indication: DRUG ERUPTION
     Route: 048
     Dates: start: 20121127
  6. REBAMIPIDE [Concomitant]
     Route: 048

REACTIONS (1)
  - Platelet count decreased [Recovered/Resolved]
